FAERS Safety Report 8169084-1 (Version None)
Quarter: 2012Q1

REPORT INFORMATION
  Report Type: 
  Country: None (occurrence: None)
  Receive Date: 20120227
  Receipt Date: 20120220
  Transmission Date: 20120608
  Serious: Yes (Death, Hospitalization)
  Sender: FDA-Public Use
  Company Number: US-CELGENEUS-163-50794-12021283

PATIENT
  Sex: Female
  Weight: 50.349 kg

DRUGS (9)
  1. AMIODARONE HCL [Concomitant]
     Route: 041
  2. VIDAZA [Suspect]
     Dosage: 75 MILLIGRAM/SQ. METER
     Route: 041
     Dates: start: 20120119, end: 20120125
  3. VIDAZA [Suspect]
     Route: 041
     Dates: start: 20110101
  4. RED BLOOD CELLS [Concomitant]
     Dosage: 150CC
     Route: 041
     Dates: start: 20120209, end: 20120209
  5. VANCOMYCIN [Concomitant]
     Route: 065
  6. LISPRO INSULIN [Concomitant]
     Route: 065
  7. PIPERACILLIN AND TAZOBACTAM [Concomitant]
     Route: 041
  8. MIDOSTAURIN [Suspect]
     Dosage: 75 MILLIGRAM
     Route: 048
     Dates: start: 20120126, end: 20120208
  9. MIDAZOLAM [Concomitant]
     Route: 041

REACTIONS (13)
  - BLOOD GLUCOSE DECREASED [None]
  - TACHYPNOEA [None]
  - SEPSIS [None]
  - FUNGAEMIA [None]
  - COAGULOPATHY [None]
  - WHITE BLOOD CELL COUNT INCREASED [None]
  - THROMBOCYTOPENIA [None]
  - INTESTINAL ISCHAEMIA [None]
  - MULTI-ORGAN FAILURE [None]
  - ACIDOSIS [None]
  - BLOOD CREATININE INCREASED [None]
  - BLOOD PRESSURE DECREASED [None]
  - ANAEMIA [None]
